FAERS Safety Report 10368862 (Version 1)
Quarter: 2014Q3

REPORT INFORMATION
  Report Type: Spontaneous
  Country: US (occurrence: US)
  Receive Date: 20140807
  Receipt Date: 20140807
  Transmission Date: 20150326
  Serious: Yes (Hospitalization)
  Sender: FDA-Public Use
  Company Number: US-BAYER-2014-116676

PATIENT
  Age: 26 Year
  Sex: Female
  Weight: 108.84 kg

DRUGS (6)
  1. OCELLA [Suspect]
     Active Substance: DROSPIRENONE\ETHINYL ESTRADIOL
  2. YAZ [Suspect]
     Active Substance: DROSPIRENONE\ETHINYL ESTRADIOL
  3. PERCOCET [Concomitant]
     Active Substance: ACETAMINOPHEN\OXYCODONE HYDROCHLORIDE
     Indication: PAIN
  4. HYDROCODONE [Concomitant]
     Active Substance: HYDROCODONE
  5. GLUCOSAMINE [Concomitant]
     Active Substance: GLUCOSAMINE
     Dosage: ONCE A DAY
     Route: 048
  6. PHENTERMINE [Concomitant]
     Active Substance: PHENTERMINE
     Dosage: 37.5 MG, ONCE A DAY
     Route: 048

REACTIONS (4)
  - Thrombophlebitis superficial [Recovered/Resolved]
  - Pelvic venous thrombosis [None]
  - Deep vein thrombosis [Recovered/Resolved]
  - Vena cava thrombosis [None]

NARRATIVE: CASE EVENT DATE: 20080910
